FAERS Safety Report 4338449-8 (Version None)
Quarter: 2004Q2

REPORT INFORMATION
  Report Type: 
  Country: None (occurrence: None)
  Receive Date: 20040409
  Receipt Date: 20040329
  Transmission Date: 20050107
  Serious: Yes (Congenital Anomaly)
  Sender: FDA-Public Use
  Company Number: 04P-163-0251846-00

PATIENT
  Age: 1 Day
  Sex: Male

DRUGS (1)
  1. NORVIR [Suspect]

REACTIONS (9)
  - ALOPECIA [None]
  - ANOXIA [None]
  - CONGENITAL ANOMALY [None]
  - CONGENITAL CENTRAL NERVOUS SYSTEM ANOMALY [None]
  - FOETAL DISORDER [None]
  - HAEMORRHAGE FOETAL [None]
  - MATERNAL DRUGS AFFECTING FOETUS [None]
  - PERIVENTRICULAR LEUKOMALACIA [None]
  - PREMATURE BABY [None]
